FAERS Safety Report 14665933 (Version 13)
Quarter: 2021Q4

REPORT INFORMATION
  Report Type: Spontaneous
  Country: GR (occurrence: GR)
  Receive Date: 20180321
  Receipt Date: 20211021
  Transmission Date: 20220303
  Serious: Yes (Hospitalization, Other)
  Sender: FDA-Public Use
  Company Number: None

PATIENT
  Age: 72 Year

DRUGS (15)
  1. CARVEDILOL [Interacting]
     Active Substance: CARVEDILOL
     Indication: Cardiac failure
     Dosage: 6.25 MILLIGRAM, QD
     Route: 065
  2. CARVEDILOL [Interacting]
     Active Substance: CARVEDILOL
     Dosage: 6.5 MG, BID (12.5 MG)
     Route: 065
  3. CARVEDILOL [Interacting]
     Active Substance: CARVEDILOL
     Dosage: 12.5 MILLIGRAM, QD (6.25 MG, BID)
     Route: 065
  4. IRBESARTAN [Interacting]
     Active Substance: IRBESARTAN
     Indication: Cardiac failure
     Dosage: 300 MG, 1X/DAY
     Route: 065
  5. IRBESARTAN [Interacting]
     Active Substance: IRBESARTAN
     Dosage: 300 MG, QD
     Route: 065
  6. DICLOFENAC [Interacting]
     Active Substance: DICLOFENAC
     Indication: Cardiac failure
     Dosage: UNK
     Route: 065
  7. DICLOFENAC [Interacting]
     Active Substance: DICLOFENAC
     Dosage: UNK UNK, QOD
     Route: 065
  8. AMILORIDE [Interacting]
     Active Substance: AMILORIDE
     Indication: Cardiac failure
     Dosage: 40 MG (FUROSEMIDE)+5 MG (AMILORIDE), BID
  9. AMILORIDE\FUROSEMIDE [Interacting]
     Active Substance: AMILORIDE\FUROSEMIDE
     Indication: Cardiac failure
     Dosage: 2 DF, 2X/DAY (40+5) MG/40 MG (FUROSEMIDE)+5 MG (AMILORIDE), BID
     Route: 065
  10. AMILORIDE\FUROSEMIDE [Interacting]
     Active Substance: AMILORIDE\FUROSEMIDE
     Dosage: 40 MG (FUROSEMIDE)+5 MG (AMILORIDE), BID
     Route: 065
  11. AMILORIDE\FUROSEMIDE [Interacting]
     Active Substance: AMILORIDE\FUROSEMIDE
     Dosage: UNK
  12. AMILORIDE\FUROSEMIDE [Interacting]
     Active Substance: AMILORIDE\FUROSEMIDE
     Dosage: 1 DOSAGE FORM, QD
     Route: 065
  13. AMILORIDE\FUROSEMIDE [Interacting]
     Active Substance: AMILORIDE\FUROSEMIDE
     Dosage: 40 MG (FUROSEMIDE)+5 MG (AMILORIDE), BID
     Route: 065
  14. FUROSEMIDE [Suspect]
     Active Substance: FUROSEMIDE
     Indication: Cardiac failure
     Dosage: 2 DOSAGE FORM, QD (4+5MG) (40+5) MG BID
  15. AMLODIPINE AND OLMESARTAN MEDOXOMIL [Suspect]
     Active Substance: AMLODIPINE BESYLATE\OLMESARTAN MEDOXOMIL
     Indication: Product used for unknown indication
     Dosage: 2 DOSAGE FORM, QD (10/20MILLIGRAM)
     Route: 065

REACTIONS (14)
  - Muscular weakness [Recovered/Resolved]
  - Hyponatraemia [Recovered/Resolved]
  - Hyperkalaemia [Recovered/Resolved]
  - Orthostatic hypotension [Recovered/Resolved]
  - Renal impairment [Recovered/Resolved]
  - Blood creatinine increased [Unknown]
  - Electrocardiogram T wave abnormal [Unknown]
  - Blood sodium increased [Unknown]
  - Blood potassium increased [Recovered/Resolved]
  - Blood urea increased [Unknown]
  - Product administration error [Unknown]
  - Product use issue [Recovered/Resolved]
  - Product use in unapproved indication [Unknown]
  - Drug interaction [Unknown]
